FAERS Safety Report 20769620 (Version 4)
Quarter: 2022Q2

REPORT INFORMATION
  Report Type: Spontaneous
  Country: US (occurrence: US)
  Receive Date: 20220429
  Receipt Date: 20220613
  Transmission Date: 20220720
  Serious: Yes (Other)
  Sender: FDA-Public Use
  Company Number: US-PFIZER INC-202200632127

PATIENT
  Age: 73 Year
  Sex: Female

DRUGS (3)
  1. ESTRING [Suspect]
     Active Substance: ESTRADIOL
     Indication: Vulvovaginal dryness
     Dosage: FROM AN UNSPECIFIED DATE IN THREE YEARS BEFORE AT 1 VAGINAL RING
     Route: 067
  2. ESTRING [Suspect]
     Active Substance: ESTRADIOL
     Dosage: 2 MG, EVERY 3 MONTHS, (INSERT ONE VAGINAL RING VAGINALLY ONE EVERY 3 MONTHS)
     Route: 067
     Dates: start: 2021
  3. ESTRING [Suspect]
     Active Substance: ESTRADIOL
     Dosage: UNK (3MOS)
     Route: 067
     Dates: start: 202012

REACTIONS (6)
  - Thrombosis [Unknown]
  - Urinary tract infection [Unknown]
  - Poor quality device used [Unknown]
  - Varicose vein [Unknown]
  - Skin burning sensation [Unknown]
  - Pain in extremity [Unknown]
